FAERS Safety Report 5550152-5 (Version None)
Quarter: 2007Q4

REPORT INFORMATION
  Report Type: 
  Country: None (occurrence: None)
  Receive Date: 20071212
  Receipt Date: 20070425
  Transmission Date: 20080405
  Serious: No
  Sender: FDA-Public Use
  Company Number: US-AMGEN-KDL213479

PATIENT
  Sex: Male

DRUGS (8)
  1. ENBREL [Suspect]
     Indication: PSORIASIS
  2. HYDROCODONE BITARTRATE [Concomitant]
  3. NAPROXEN [Concomitant]
  4. LISINOPRIL [Concomitant]
  5. DETROL [Concomitant]
  6. ASCORBIC ACID [Concomitant]
  7. CENTRUM [Concomitant]
  8. ALEVE [Concomitant]

REACTIONS (2)
  - DIZZINESS [None]
  - VERTIGO [None]
